FAERS Safety Report 17569441 (Version 4)
Quarter: 2020Q2

REPORT INFORMATION
  Report Type: Report from Study
  Country: US (occurrence: US)
  Receive Date: 20200323
  Receipt Date: 20200515
  Transmission Date: 20200713
  Serious: No
  Sender: FDA-Public Use
  Company Number: NVSC2020US079020

PATIENT
  Age: 49 Year
  Sex: Female

DRUGS (2)
  1. COSENTYX [Suspect]
     Active Substance: SECUKINUMAB
     Indication: PSORIASIS
  2. COSENTYX [Suspect]
     Active Substance: SECUKINUMAB
     Indication: PSORIATIC ARTHROPATHY
     Dosage: 300 MG, QMO
     Route: 058
     Dates: start: 202001

REACTIONS (5)
  - Feeling hot [Unknown]
  - Nausea [Unknown]
  - Fatigue [Recovering/Resolving]
  - Malaise [Unknown]
  - Thyroid mass [Unknown]

NARRATIVE: CASE EVENT DATE: 202002
